FAERS Safety Report 13418655 (Version 2)
Quarter: 2017Q2

REPORT INFORMATION
  Report Type: Report from Study
  Country: None (occurrence: US)
  Receive Date: 20170406
  Receipt Date: 20170630
  Transmission Date: 20170830
  Serious: Yes (Death, Other)
  Sender: FDA-Public Use
  Company Number: US-ABBVIE-17P-163-1929150-00

PATIENT
  Age: 67 Year
  Sex: Male
  Weight: 102.15 kg

DRUGS (16)
  1. VENCLEXTA [Suspect]
     Active Substance: VENETOCLAX
     Route: 048
  2. VENCLEXTA [Suspect]
     Active Substance: VENETOCLAX
     Indication: MYELODYSPLASTIC SYNDROME
     Route: 048
     Dates: start: 201701
  3. CLARITIN [Concomitant]
     Active Substance: LORATADINE
     Indication: PRODUCT USED FOR UNKNOWN INDICATION
     Route: 048
  4. ACYCLOVIR. [Concomitant]
     Active Substance: ACYCLOVIR
     Indication: PRODUCT USED FOR UNKNOWN INDICATION
     Dosage: 12 HOURS
     Route: 048
  5. CRESEMBA [Concomitant]
     Active Substance: ISAVUCONAZONIUM SULFATE
     Indication: PRODUCT USED FOR UNKNOWN INDICATION
     Dosage: 186 MILLIGRAM/372 MILLIGRAM
     Route: 048
  6. DIGOXIN. [Concomitant]
     Active Substance: DIGOXIN
     Indication: PRODUCT USED FOR UNKNOWN INDICATION
     Route: 048
  7. MIDODRINE [Concomitant]
     Active Substance: MIDODRINE
     Indication: PRODUCT USED FOR UNKNOWN INDICATION
     Route: 048
  8. VENCLEXTA [Suspect]
     Active Substance: VENETOCLAX
     Route: 048
  9. VENCLEXTA [Suspect]
     Active Substance: VENETOCLAX
     Route: 048
  10. MOXIFLOXACIN. [Concomitant]
     Active Substance: MOXIFLOXACIN
     Indication: PRODUCT USED FOR UNKNOWN INDICATION
     Route: 048
  11. VENCLEXTA [Suspect]
     Active Substance: VENETOCLAX
     Route: 048
  12. VENCLEXTA [Suspect]
     Active Substance: VENETOCLAX
     Route: 048
  13. NEUPOGEN [Suspect]
     Active Substance: FILGRASTIM
     Indication: WHITE BLOOD CELL COUNT DECREASED
     Dosage: 480MCG/018ML SYRINGE AT BEDTIME
     Route: 030
  14. VENCLEXTA [Suspect]
     Active Substance: VENETOCLAX
     Route: 048
  15. AMOXICILLIN-POT CLAVULANATE [Concomitant]
     Active Substance: AMOXICILLIN\CLAVULANATE POTASSIUM
     Indication: PRODUCT USED FOR UNKNOWN INDICATION
     Dosage: 875/125 MILLIGRAM
     Route: 048
  16. METOPROLOL. [Concomitant]
     Active Substance: METOPROLOL
     Indication: PRODUCT USED FOR UNKNOWN INDICATION
     Dosage: 12.5 MILLIGRAM Q 12 HOURS
     Route: 048

REACTIONS (25)
  - Asthenia [Unknown]
  - Feeling abnormal [Not Recovered/Not Resolved]
  - Dysstasia [Unknown]
  - White blood cell count decreased [Unknown]
  - Feeling abnormal [Unknown]
  - Dyspnoea [Not Recovered/Not Resolved]
  - Visual impairment [Unknown]
  - Myalgia [Not Recovered/Not Resolved]
  - Platelet count decreased [Unknown]
  - Weight fluctuation [Unknown]
  - Off label use [Unknown]
  - Confusional state [Not Recovered/Not Resolved]
  - Arthralgia [Unknown]
  - Red blood cell count decreased [Unknown]
  - Insomnia [Recovered/Resolved]
  - Malaise [Unknown]
  - Vision blurred [Unknown]
  - Urine abnormality [Not Recovered/Not Resolved]
  - Quality of life decreased [Not Recovered/Not Resolved]
  - Death [Fatal]
  - Muscular weakness [Unknown]
  - Heart rate irregular [Not Recovered/Not Resolved]
  - Vomiting [Recovered/Resolved]
  - Back pain [Unknown]
  - Malaise [Recovered/Resolved]

NARRATIVE: CASE EVENT DATE: 2017
